APPROVED DRUG PRODUCT: PROPRANOLOL HYDROCHLORIDE
Active Ingredient: PROPRANOLOL HYDROCHLORIDE
Strength: 1MG/ML
Dosage Form/Route: INJECTABLE;INJECTION
Application: A076400 | Product #001
Applicant: FOSUN PHARMA USA INC
Approved: Feb 26, 2003 | RLD: No | RS: No | Type: DISCN